FAERS Safety Report 4383721-9 (Version None)
Quarter: 2004Q2

REPORT INFORMATION
  Report Type: 
  Country: None (occurrence: None)
  Receive Date: 20040608
  Receipt Date: 20031112
  Transmission Date: 20050107
  Serious: Yes (Hospitalization, Other)
  Sender: FDA-Public Use
  Company Number: 200314217BCC

PATIENT
  Age: 28 Year
  Sex: Female
  Weight: 86.1834 kg

DRUGS (1)
  1. ALEVE [Suspect]
     Dosage: 1320 MG, TOTAL DAILY, ORAL
     Route: 048
     Dates: start: 20031111

REACTIONS (1)
  - NO ADVERSE DRUG EFFECT [None]
